FAERS Safety Report 4307982-7 (Version None)
Quarter: 2004Q1

REPORT INFORMATION
  Report Type: 
  Country: None (occurrence: None)
  Receive Date: 20040301
  Receipt Date: 20030220
  Transmission Date: 20041129
  Serious: No
  Sender: FDA-Public Use
  Company Number: US-BRISTOL-MYERS SQUIBB COMPANY-12191466

PATIENT
  Age: 53 Year
  Sex: Male
  Weight: 75 kg

DRUGS (5)
  1. GLUCOPHAGE [Suspect]
     Indication: DIABETES MELLITUS NON-INSULIN-DEPENDENT
     Route: 048
     Dates: start: 19980101, end: 20020101
  2. METFORMIN HCL [Suspect]
     Indication: DIABETES MELLITUS NON-INSULIN-DEPENDENT
     Dosage: DECREASED FROM 2000 MG DAILY
     Route: 048
     Dates: start: 20020101
  3. IRON SUPPLEMENT [Concomitant]
  4. VITAMIN C [Concomitant]
  5. LISINOPRIL [Concomitant]

REACTIONS (4)
  - ANAEMIA [None]
  - DIABETES MELLITUS INADEQUATE CONTROL [None]
  - DIARRHOEA [None]
  - WEIGHT DECREASED [None]
